FAERS Safety Report 7962852-8 (Version None)
Quarter: 2011Q4

REPORT INFORMATION
  Report Type: 
  Country: None (occurrence: None)
  Receive Date: 20111207
  Receipt Date: 20111129
  Transmission Date: 20120403
  Serious: Yes (Other)
  Sender: FDA-Public Use
  Company Number: DE-UCBSA-046610

PATIENT
  Sex: Female

DRUGS (7)
  1. PREDNISOLONE [Concomitant]
     Indication: RHEUMATOID ARTHRITIS
  2. CERTOLIZUMAB PEGOL [Suspect]
     Indication: RHEUMATOID ARTHRITIS
     Route: 058
     Dates: end: 20110101
  3. IBUPROFEN [Concomitant]
     Indication: RHEUMATOID ARTHRITIS
  4. CALCIUM D3 [Concomitant]
     Indication: PROPHYLAXIS
     Dosage: AS USED: 1000
     Dates: start: 20080501
  5. ARAVA [Concomitant]
     Indication: RHEUMATOID ARTHRITIS
     Dates: start: 20080501
  6. LEVOTHYROXINE SODIUM [Concomitant]
     Indication: HYPOTHYROIDISM
     Dates: start: 20060101
  7. SIMVASTATIN [Concomitant]
     Indication: HYPERLIPIDAEMIA
     Dates: start: 20100401

REACTIONS (5)
  - ANAEMIA [None]
  - HAEMANGIOMA [None]
  - HAEMORRHOIDS [None]
  - KERATITIS [None]
  - HYPOAESTHESIA ORAL [None]
